FAERS Safety Report 8180773-5 (Version None)
Quarter: 2012Q1

REPORT INFORMATION
  Report Type: 
  Country: None (occurrence: None)
  Receive Date: 20120302
  Receipt Date: 20120229
  Transmission Date: 20120608
  Serious: Yes (Other)
  Sender: FDA-Public Use
  Company Number: US-PFIZER INC-2012054376

PATIENT
  Sex: Female
  Weight: 53.5 kg

DRUGS (5)
  1. LYRICA [Suspect]
     Indication: NERVE BLOCK
  2. NEURONTIN [Suspect]
     Indication: SYSTEMIC LUPUS ERYTHEMATOSUS
  3. NEURONTIN [Suspect]
     Indication: NEURALGIA
  4. LYRICA [Suspect]
     Indication: PAIN
     Dosage: 200 MG, 2X/DAY
     Route: 048
     Dates: start: 20070101
  5. NEURONTIN [Suspect]
     Indication: FIBROMYALGIA
     Dosage: UNK
     Route: 048
     Dates: end: 19980101

REACTIONS (1)
  - ROTATOR CUFF SYNDROME [None]
